FAERS Safety Report 13383059 (Version 4)
Quarter: 2017Q2

REPORT INFORMATION
  Report Type: Spontaneous
  Country: BR (occurrence: BR)
  Receive Date: 20170329
  Receipt Date: 20170424
  Transmission Date: 20170830
  Serious: Yes (Hospitalization)
  Sender: FDA-Public Use
  Company Number: BR-SA-2017SA049224

PATIENT
  Age: 17 Year
  Sex: Female
  Weight: 59 kg

DRUGS (3)
  1. LANTUS [Suspect]
     Active Substance: INSULIN GLARGINE
     Indication: TYPE 1 DIABETES MELLITUS
     Dosage: 30 IU AT MORNING AND 30 IU AT NIGHT
     Route: 065
     Dates: start: 2008
  2. CLIKSTAR [Suspect]
     Active Substance: CLIKSTAR
     Indication: TYPE 1 DIABETES MELLITUS
     Dates: start: 2008
  3. APIDRA [Concomitant]
     Active Substance: INSULIN GLULISINE
     Indication: TYPE 1 DIABETES MELLITUS
     Dosage: BASED ON THE CARBOHYDRATE COUNTING
     Dates: start: 2009

REACTIONS (6)
  - Asthenia [Recovering/Resolving]
  - Blood glucose increased [Recovered/Resolved]
  - Injection site haemorrhage [Unknown]
  - Ketoacidosis [Recovering/Resolving]
  - Product use issue [Unknown]
  - Device use issue [Unknown]
